FAERS Safety Report 10788124 (Version 1)
Quarter: 2015Q1

REPORT INFORMATION
  Report Type: Spontaneous
  Country: US (occurrence: None)
  Receive Date: 20150211
  Receipt Date: 20150211
  Transmission Date: 20150721
  Serious: Yes (Other)
  Sender: FDA-Public Use
  Company Number: None

PATIENT
  Age: 59 Year
  Sex: Male

DRUGS (1)
  1. BOSULIF [Suspect]
     Active Substance: BOSUTINIB MONOHYDRATE
     Indication: CHRONIC MYELOID LEUKAEMIA
     Dosage: 1 TABLETS,??TO MID JAN-2015
     Route: 048
     Dates: start: 20150118, end: 201501

REACTIONS (2)
  - Blood count abnormal [None]
  - Therapy cessation [None]

NARRATIVE: CASE EVENT DATE: 201501
